FAERS Safety Report 9217600 (Version 3)
Quarter: 2013Q2

REPORT INFORMATION
  Report Type: Report from Study
  Country: US (occurrence: US)
  Receive Date: 20130408
  Receipt Date: 20130501
  Transmission Date: 20140414
  Serious: Yes (Life-Threatening, Hospitalization, Disabling)
  Sender: FDA-Public Use
  Company Number: US-ROCHE-1210209

PATIENT
  Age: 75 Year
  Sex: Female
  Weight: 59.02 kg

DRUGS (25)
  1. ZELBORAF [Suspect]
     Indication: METASTATIC MALIGNANT MELANOMA
     Route: 048
     Dates: end: 20130313
  2. ZELBORAF [Suspect]
     Route: 048
     Dates: end: 20130329
  3. ZELBORAF [Suspect]
     Route: 065
  4. CARVEDILOL [Concomitant]
     Route: 065
  5. ZOFRAN [Concomitant]
     Route: 065
  6. ALBUTEROL [Concomitant]
     Dosage: 108 MCG/ACT INHALAR
     Route: 065
  7. LASIX [Concomitant]
     Route: 065
  8. OXYCONTIN [Concomitant]
     Route: 065
  9. LIDODERM [Concomitant]
     Route: 065
  10. ROXICODONE [Concomitant]
     Route: 065
  11. IMDUR [Concomitant]
     Route: 065
  12. ASPIRIN [Concomitant]
     Route: 065
  13. PLAVIX [Concomitant]
     Route: 065
  14. PRINIVIL [Concomitant]
     Route: 065
  15. ATIVAN [Concomitant]
     Route: 065
  16. AMBIEN [Concomitant]
     Route: 065
  17. ZOCOR [Concomitant]
     Route: 065
  18. NITROSTAT [Concomitant]
     Route: 065
  19. SYNTHROID [Concomitant]
     Route: 065
  20. ASACOL [Concomitant]
     Route: 065
  21. ATARAX [Concomitant]
     Route: 065
  22. ULTRAM [Concomitant]
     Route: 065
  23. TESSALON PERLES [Concomitant]
     Route: 065
  24. DETROL [Concomitant]
     Route: 065
  25. ZOLOFT [Concomitant]
     Route: 065

REACTIONS (5)
  - Cardiac failure congestive [Recovered/Resolved with Sequelae]
  - Myocardial infarction [Recovered/Resolved with Sequelae]
  - Angina pectoris [Recovered/Resolved]
  - Pneumonia [Recovered/Resolved]
  - Electrocardiogram QT prolonged [Recovered/Resolved]
